FAERS Safety Report 25864122 (Version 1)
Quarter: 2025Q3

REPORT INFORMATION
  Report Type: Report from Study
  Country: CO (occurrence: CO)
  Receive Date: 20250930
  Receipt Date: 20250930
  Transmission Date: 20251020
  Serious: Yes (Other)
  Sender: JOHNSON AND JOHNSON
  Company Number: CO-JNJFOC-20250938838

PATIENT
  Sex: Male
  Weight: 67 kg

DRUGS (1)
  1. SIMPONI [Suspect]
     Active Substance: GOLIMUMAB
     Indication: Ankylosing spondylitis
     Route: 058
     Dates: start: 2012

REACTIONS (2)
  - Uveitis [Unknown]
  - Skin papilloma [Unknown]

NARRATIVE: CASE EVENT DATE: 20230101
